FAERS Safety Report 7361861-X (Version None)
Quarter: 2011Q1

REPORT INFORMATION
  Report Type: 
  Country: None (occurrence: None)
  Receive Date: 20110318
  Receipt Date: 20110215
  Transmission Date: 20110831
  Serious: Yes (Hospitalization, Other)
  Sender: FDA-Public Use
  Company Number: US-BAYER-201039785NA

PATIENT
  Sex: Female

DRUGS (4)
  1. DEPAKOTE [Concomitant]
     Indication: MIGRAINE
     Dosage: UNK UNK, HS
  2. YAZ [Suspect]
     Indication: PRODUCT USED FOR UNKNOWN INDICATION
     Route: 048
     Dates: start: 20070401, end: 20080901
  3. TYLENOL W/ CODEINE [Concomitant]
  4. MOTRIN [Concomitant]

REACTIONS (6)
  - PAIN IN EXTREMITY [None]
  - DEEP VEIN THROMBOSIS [None]
  - PULMONARY EMBOLISM [None]
  - DIZZINESS [None]
  - FATIGUE [None]
  - DYSPNOEA [None]
